FAERS Safety Report 22519226 (Version 1)
Quarter: 2023Q2

REPORT INFORMATION
  Report Type: Spontaneous
  Country: JP (occurrence: JP)
  Receive Date: 20230605
  Receipt Date: 20230605
  Transmission Date: 20230722
  Serious: Yes (Other)
  Sender: FDA-Public Use
  Company Number: JP-009507513-2302JPN007647

PATIENT
  Age: 73 Year
  Sex: Male

DRUGS (5)
  1. KEYTRUDA [Suspect]
     Active Substance: PEMBROLIZUMAB
     Indication: Cholangiocarcinoma
     Dosage: 200 MILLIGRAM, QOW
     Route: 041
     Dates: start: 202104
  2. MAGNESIUM OXIDE [Concomitant]
     Active Substance: MAGNESIUM OXIDE
     Dosage: 3 TABLETS, QD DIVIDED BY 3 DOSES
  3. ACETAMINOPHEN [Concomitant]
     Active Substance: ACETAMINOPHEN
     Dosage: 3 DOSAGE FORM, QD DIVIDED BY 3 DOSES
  4. NEXIUM [Concomitant]
     Active Substance: ESOMEPRAZOLE MAGNESIUM
     Dosage: 1 CAPSULE, QD
  5. URSO S [Concomitant]
     Dosage: 6 DOSAGE FORM, QD DIVIDED BY 3 DOSES

REACTIONS (4)
  - Bronchostenosis [Unknown]
  - Tracheobronchitis [Recovering/Resolving]
  - Product use in unapproved indication [Unknown]
  - Inappropriate schedule of product administration [Unknown]

NARRATIVE: CASE EVENT DATE: 20210401
